FAERS Safety Report 20712081 (Version 2)
Quarter: 2022Q2

REPORT INFORMATION
  Report Type: Report from Study
  Country: AR (occurrence: AR)
  Receive Date: 20220414
  Receipt Date: 20220503
  Transmission Date: 20220721
  Serious: Yes (Other)
  Sender: FDA-Public Use
  Company Number: AR-ABBVIE-22K-007-4282360-00

PATIENT
  Sex: Female

DRUGS (1)
  1. HUMIRA [Suspect]
     Active Substance: ADALIMUMAB
     Indication: Rheumatoid arthritis
     Route: 058
     Dates: start: 20110101

REACTIONS (8)
  - Neoplasm [Not Recovered/Not Resolved]
  - Breast cancer [Unknown]
  - Unevaluable event [Unknown]
  - Blood calcium decreased [Unknown]
  - Vitamin D decreased [Unknown]
  - Laboratory test abnormal [Unknown]
  - Breast mass [Not Recovered/Not Resolved]
  - Gastrointestinal wall thickening [Unknown]
